FAERS Safety Report 16241886 (Version 1)
Quarter: 2019Q2

REPORT INFORMATION
  Report Type: Spontaneous
  Country: DE (occurrence: DE)
  Receive Date: 20190426
  Receipt Date: 20190426
  Transmission Date: 20190711
  Serious: Yes (Other)
  Sender: FDA-Public Use
  Company Number: DE-TEVA-2019-DE-1040461

PATIENT
  Age: 54 Year
  Sex: Male
  Weight: 100 kg

DRUGS (9)
  1. RAMILICH 2,5 MG TABLETTEN [Concomitant]
  2. HCT DEXCEL 25 MG TABLETTEN [Concomitant]
  3. GABAPENTIN HEXAL 300 MG HARTKAPSELN [Concomitant]
     Indication: MUSCLE SPASMS
     Route: 048
     Dates: start: 201804
  4. APIDRA 100 E/ML SOLOSTAR [Concomitant]
  5. ASS DEXCEL PROTECT 100 MG TABLETTEN [Concomitant]
  6. NEBIVOLOL GLENMARK 5 MG TABLETTEN [Concomitant]
  7. LANTUS 100 E/ML SOLOSTAR [Concomitant]
  8. SIMVASTATIN-RATIOPHARM 20MG FILMTABLETTEN [Suspect]
     Active Substance: SIMVASTATIN
  9. TORASEMID AAA-PHARMA 10 MG [Concomitant]

REACTIONS (12)
  - Muscle atrophy [Unknown]
  - Paralysis [Unknown]
  - Hypoaesthesia [Unknown]
  - Somnolence [Unknown]
  - Dyspnoea [Unknown]
  - Peripheral vascular disorder [Unknown]
  - Myalgia [Unknown]
  - Muscle spasms [Unknown]
  - Nausea [Unknown]
  - Arthralgia [Unknown]
  - Paraesthesia [Unknown]
  - Dizziness [Unknown]

NARRATIVE: CASE EVENT DATE: 2016
